FAERS Safety Report 6873058-8 (Version None)
Quarter: 2010Q3

REPORT INFORMATION
  Report Type: 
  Country: None (occurrence: None)
  Receive Date: 20100723
  Receipt Date: 20090203
  Transmission Date: 20110219
  Serious: Yes (Other)
  Sender: FDA-Public Use
  Company Number: US-PFIZER INC-2008098058

PATIENT
  Sex: Female
  Weight: 61.678 kg

DRUGS (7)
  1. CHANTIX [Suspect]
     Indication: SMOKING CESSATION THERAPY
     Dosage: UNK
     Route: 048
     Dates: start: 20081030, end: 20081110
  2. CYMBALTA [Concomitant]
  3. KADIAN [Concomitant]
  4. LIDODERM [Concomitant]
  5. LUNESTA [Concomitant]
  6. PROMETHAZINE HYDROCHLORIDE [Concomitant]
  7. TYLENOL W/ CODEINE NO. 3 [Concomitant]

REACTIONS (6)
  - ABNORMAL DREAMS [None]
  - ALANINE AMINOTRANSFERASE INCREASED [None]
  - ASPARTATE AMINOTRANSFERASE INCREASED [None]
  - HALLUCINATION [None]
  - NIGHT SWEATS [None]
  - YELLOW SKIN [None]
